FAERS Safety Report 13122302 (Version 1)
Quarter: 2017Q1

REPORT INFORMATION
  Report Type: Other
  Country: None (occurrence: US)
  Receive Date: 20170117
  Receipt Date: 20170117
  Transmission Date: 20170428
  Serious: Yes (Other)
  Sender: FDA-Public Use
  Company Number: US-GUTHY-RENKER LLC-1062072

PATIENT
  Age: 52 Year
  Sex: Female

DRUGS (2)
  1. MEANINGFUL BEAUTY CINDY CRAWFORD ANTIOXIDANT SPF 20 UVA/UVB [Suspect]
     Active Substance: AVOBENZONE\OCTINOXATE\OCTISALATE\OXYBENZONE
     Indication: PROPHYLAXIS AGAINST SOLAR RADIATION
     Route: 061
     Dates: start: 20161007, end: 20170101
  2. METHOTREXATE, MULTIVITAMIN, FOLIC ACID, EPIPEN AS NEEDED FOR REACTIONS [Concomitant]

REACTIONS (4)
  - Local swelling [None]
  - Urticaria [Recovering/Resolving]
  - Dry skin [None]
  - Milia [None]

NARRATIVE: CASE EVENT DATE: 20170101
